FAERS Safety Report 9618525 (Version 1)
Quarter: 2013Q4

REPORT INFORMATION
  Report Type: Spontaneous
  Country: US (occurrence: US)
  Receive Date: 20131014
  Receipt Date: 20131014
  Transmission Date: 20140711
  Serious: No
  Sender: FDA-Public Use
  Company Number: US-PFIZER INC-2013289813

PATIENT
  Age: 43 Year
  Sex: Female
  Weight: 70.75 kg

DRUGS (3)
  1. GEODON [Suspect]
     Indication: BIPOLAR DISORDER
     Dosage: TWO 60MG CAPSULES AND ONE 40MG CAPSULE, UNK
  2. TOPAMAX [Suspect]
     Indication: BIPOLAR DISORDER
     Dosage: 400 MG, 1X/DAY
  3. CYMBALTA [Concomitant]
     Dosage: UNK

REACTIONS (1)
  - Amnesia [Not Recovered/Not Resolved]
